FAERS Safety Report 25144907 (Version 1)
Quarter: 2025Q2

REPORT INFORMATION
  Report Type: Spontaneous
  Country: DE (occurrence: DE)
  Receive Date: 20250401
  Receipt Date: 20250401
  Transmission Date: 20250716
  Serious: Yes (Other)
  Sender: ROCHE
  Company Number: DE-002147023-NVSC2025DE050887

PATIENT
  Age: 43 Year
  Sex: Female

DRUGS (3)
  1. XOLAIR [Suspect]
     Active Substance: OMALIZUMAB
     Indication: Hypersensitivity
     Dosage: 150 MG, Q2W
     Route: 065
     Dates: start: 202401, end: 202407
  2. XOLAIR [Suspect]
     Active Substance: OMALIZUMAB
     Indication: Asthma
     Dosage: 150 MG, QW
     Route: 065
     Dates: start: 202407
  3. XOLAIR [Suspect]
     Active Substance: OMALIZUMAB
     Dosage: 300 MG, QW
     Route: 065

REACTIONS (4)
  - Immunodeficiency [Unknown]
  - Illness [Unknown]
  - Infection [Unknown]
  - Blood immunoglobulin E increased [Unknown]
